FAERS Safety Report 4389888-0 (Version None)
Quarter: 2004Q2

REPORT INFORMATION
  Report Type: 
  Country: None (occurrence: None)
  Receive Date: 20040630
  Receipt Date: 20040618
  Transmission Date: 20050107
  Serious: Yes (Hospitalization)
  Sender: FDA-Public Use
  Company Number: 2004041405

PATIENT
  Age: 70 Year
  Sex: Male

DRUGS (1)
  1. TAHOR (ATORVASTATIN) [Suspect]
     Indication: TYPE IIA HYPERLIPIDAEMIA
     Dosage: 60 MG (1 IN 1 D)
     Dates: end: 20040601

REACTIONS (2)
  - ANAEMIA [None]
  - LEUKOPENIA [None]
